FAERS Safety Report 10650482 (Version 1)
Quarter: 2014Q4

REPORT INFORMATION
  Report Type: Spontaneous
  Country: US (occurrence: US)
  Receive Date: 20141213
  Receipt Date: 20141213
  Transmission Date: 20150529
  Serious: No
  Sender: FDA-Public Use
  Company Number: US-BAUSCH-SYM-2014-24025

PATIENT
  Sex: Female

DRUGS (1)
  1. XENAZINE [Suspect]
     Active Substance: TETRABENAZINE
     Indication: CHOREA
     Dosage: 25 MG IN THE MORNING AND 12.5 MG IN THE EVENING
     Route: 048
     Dates: start: 20140224

REACTIONS (1)
  - Movement disorder [Unknown]

NARRATIVE: CASE EVENT DATE: 2014
